FAERS Safety Report 5708188-7 (Version None)
Quarter: 2008Q2

REPORT INFORMATION
  Report Type: 
  Country: None (occurrence: None)
  Receive Date: 20080414
  Receipt Date: 20080331
  Transmission Date: 20081010
  Serious: Yes (Life-Threatening, Hospitalization, Other)
  Sender: FDA-Public Use
  Company Number: 2008VX000801

PATIENT
  Age: 34 Year
  Sex: Male

DRUGS (6)
  1. FLURAZEPAM HCL [Suspect]
  2. ATAZANAVIR SULFATE [Suspect]
     Indication: HIV INFECTION
     Dosage: 300 MG;QD;PO
     Route: 048
  3. RITONAVIR (RITONAVIR) [Suspect]
     Indication: HIV INFECTION
     Dosage: 100 MG;QD;PO
     Route: 048
  4. METHADONE HCL [Suspect]
     Indication: DRUG ABUSER
     Dosage: 105 MG;QD;PO; 90 MG;QD;PO
     Route: 048
  5. CO-TRIMOXAZOLE [Concomitant]
  6. TRUVADA [Concomitant]

REACTIONS (16)
  - ASPARTATE AMINOTRANSFERASE INCREASED [None]
  - BLOOD BILIRUBIN INCREASED [None]
  - BLOOD PRESSURE DECREASED [None]
  - CREPITATIONS [None]
  - DRUG INTERACTION [None]
  - ELECTROCARDIOGRAM PR PROLONGATION [None]
  - ELECTROCARDIOGRAM QT PROLONGED [None]
  - FALL [None]
  - HYPERHIDROSIS [None]
  - LOSS OF CONSCIOUSNESS [None]
  - MIOSIS [None]
  - OVERDOSE [None]
  - RESPIRATORY RATE INCREASED [None]
  - SINUS BRADYCARDIA [None]
  - SOMNOLENCE [None]
  - TORSADE DE POINTES [None]
